FAERS Safety Report 20033444 (Version 1)
Quarter: 2021Q4

REPORT INFORMATION
  Report Type: Spontaneous
  Country: CA (occurrence: CA)
  Receive Date: 20211104
  Receipt Date: 20211104
  Transmission Date: 20220303
  Serious: Yes (Death, Life-Threatening, Disabling, Other)
  Sender: FDA-Public Use
  Company Number: CA-TEVA-2021-CA-1945519

PATIENT
  Age: 59 Year
  Weight: 68 kg

DRUGS (186)
  1. ACETAMINOPHEN [Suspect]
     Active Substance: ACETAMINOPHEN
     Indication: Product used for unknown indication
     Route: 064
  2. ALENDRONATE SODIUM [Suspect]
     Active Substance: ALENDRONATE SODIUM
     Indication: Rheumatoid arthritis
     Route: 064
  3. ALENDRONATE SODIUM [Suspect]
     Active Substance: ALENDRONATE SODIUM
     Indication: Product used for unknown indication
     Route: 048
  4. ALENDRONATE SODIUM [Suspect]
     Active Substance: ALENDRONATE SODIUM
     Route: 048
  5. DICLOFENAC SODIUM [Suspect]
     Active Substance: DICLOFENAC SODIUM
     Indication: Product used for unknown indication
     Route: 064
  6. DICLOFENAC SODIUM [Suspect]
     Active Substance: DICLOFENAC SODIUM
     Route: 064
  7. DIPHENHYDRAMINE HYDROCHLORIDE [Suspect]
     Active Substance: DIPHENHYDRAMINE HYDROCHLORIDE
     Indication: Product used for unknown indication
     Route: 064
  8. DIPHENHYDRAMINE HYDROCHLORIDE [Suspect]
     Active Substance: DIPHENHYDRAMINE HYDROCHLORIDE
     Indication: Rheumatoid arthritis
  9. LEFLUNOMIDE [Suspect]
     Active Substance: LEFLUNOMIDE
     Indication: Rheumatoid arthritis
     Route: 064
  10. METHOTREXATE [Suspect]
     Active Substance: METHOTREXATE
     Indication: Rheumatoid arthritis
     Route: 064
  11. METHOTREXATE [Suspect]
     Active Substance: METHOTREXATE
     Indication: Product used for unknown indication
     Route: 064
  12. METHOTREXATE [Suspect]
     Active Substance: METHOTREXATE
     Route: 058
  13. METHOTREXATE [Suspect]
     Active Substance: METHOTREXATE
     Dosage: 20 MILLIGRAM DAILY;
     Route: 065
  14. METHOTREXATE [Suspect]
     Active Substance: METHOTREXATE
     Route: 013
  15. PREDNISONE [Suspect]
     Active Substance: PREDNISONE
     Indication: Product used for unknown indication
     Route: 064
  16. PREDNISONE [Suspect]
     Active Substance: PREDNISONE
     Route: 064
  17. PREDNISONE [Suspect]
     Active Substance: PREDNISONE
     Route: 048
  18. PREDNISONE [Suspect]
     Active Substance: PREDNISONE
     Route: 065
  19. PREDNISONE [Suspect]
     Active Substance: PREDNISONE
     Route: 048
  20. ALENDRONIC ACID [Suspect]
     Active Substance: ALENDRONIC ACID
     Indication: Product used for unknown indication
     Route: 065
  21. ALENDRONIC ACID [Suspect]
     Active Substance: ALENDRONIC ACID
     Route: 065
  22. CALCIUM CARBONATE [Suspect]
     Active Substance: CALCIUM CARBONATE
     Indication: Product used for unknown indication
     Route: 065
  23. CALCIUM CARBONATE [Suspect]
     Active Substance: CALCIUM CARBONATE
     Route: 065
  24. CALCIUM CARBONATE [Suspect]
     Active Substance: CALCIUM CARBONATE
     Route: 065
  25. CALCIUM CARBONATE [Suspect]
     Active Substance: CALCIUM CARBONATE
     Route: 065
  26. DICLOFENAC [Suspect]
     Active Substance: DICLOFENAC
     Indication: Product used for unknown indication
     Route: 065
  27. DICLOFENAC [Suspect]
     Active Substance: DICLOFENAC
     Route: 065
  28. DICLOFENAC [Suspect]
     Active Substance: DICLOFENAC
     Route: 065
  29. ACTEMRA [Suspect]
     Active Substance: TOCILIZUMAB
     Indication: Rheumatoid arthritis
     Route: 064
  30. ACTEMRA [Suspect]
     Active Substance: TOCILIZUMAB
     Route: 042
  31. ADALIMUMAB [Suspect]
     Active Substance: ADALIMUMAB
     Indication: Rheumatoid arthritis
     Route: 064
  32. ADALIMUMAB [Suspect]
     Active Substance: ADALIMUMAB
     Indication: Product used for unknown indication
     Route: 058
  33. ADALIMUMAB [Suspect]
     Active Substance: ADALIMUMAB
     Route: 058
  34. ALENDRONATE SODIUM [Suspect]
     Active Substance: ALENDRONATE SODIUM
     Indication: Rheumatoid arthritis
     Route: 064
  35. ALENDRONATE SODIUM [Suspect]
     Active Substance: ALENDRONATE SODIUM
     Route: 064
  36. PREDNISONE [Suspect]
     Active Substance: PREDNISONE
     Indication: Product used for unknown indication
     Route: 064
  37. PREDNISONE [Suspect]
     Active Substance: PREDNISONE
     Route: 048
  38. ARAVA [Suspect]
     Active Substance: LEFLUNOMIDE
     Indication: Rheumatoid arthritis
     Route: 064
  39. ARAVA [Suspect]
     Active Substance: LEFLUNOMIDE
     Indication: Product used for unknown indication
     Route: 064
  40. ARAVA [Suspect]
     Active Substance: LEFLUNOMIDE
     Route: 048
  41. ARAVA [Suspect]
     Active Substance: LEFLUNOMIDE
     Route: 048
  42. CETIRIZINE HYDROCHLORIDE [Suspect]
     Active Substance: CETIRIZINE HYDROCHLORIDE
     Indication: Rheumatoid arthritis
     Route: 064
  43. CETIRIZINE HYDROCHLORIDE [Suspect]
     Active Substance: CETIRIZINE HYDROCHLORIDE
     Route: 064
  44. CETIRIZINE HYDROCHLORIDE [Suspect]
     Active Substance: CETIRIZINE HYDROCHLORIDE
     Route: 065
  45. CETIRIZINE HYDROCHLORIDE\PSEUDOEPHEDRINE HYDROCHLORIDE [Suspect]
     Active Substance: CETIRIZINE HYDROCHLORIDE\PSEUDOEPHEDRINE HYDROCHLORIDE
     Indication: Rheumatoid arthritis
     Route: 064
  46. CIMZIA [Suspect]
     Active Substance: CERTOLIZUMAB PEGOL
     Indication: Rheumatoid arthritis
     Route: 064
  47. CIMZIA [Suspect]
     Active Substance: CERTOLIZUMAB PEGOL
     Indication: Product used for unknown indication
     Route: 064
  48. CIMZIA [Suspect]
     Active Substance: CERTOLIZUMAB PEGOL
     Route: 064
  49. CIMZIA [Suspect]
     Active Substance: CERTOLIZUMAB PEGOL
     Route: 058
  50. CIMZIA [Suspect]
     Active Substance: CERTOLIZUMAB PEGOL
     Route: 058
  51. CIMZIA [Suspect]
     Active Substance: CERTOLIZUMAB PEGOL
     Route: 058
  52. CORTISONE ACETATE [Suspect]
     Active Substance: CORTISONE ACETATE
     Indication: Rheumatoid arthritis
     Route: 064
  53. CORTISONE ACETATE [Suspect]
     Active Substance: CORTISONE ACETATE
     Indication: Product used for unknown indication
     Route: 064
  54. CORTISONE ACETATE [Suspect]
     Active Substance: CORTISONE ACETATE
     Route: 064
  55. CORTISONE ACETATE [Suspect]
     Active Substance: CORTISONE ACETATE
     Route: 064
  56. CORTISONE ACETATE [Suspect]
     Active Substance: CORTISONE ACETATE
     Route: 064
  57. CORTISONE ACETATE [Suspect]
     Active Substance: CORTISONE ACETATE
     Route: 048
  58. CORTISONE ACETATE [Suspect]
     Active Substance: CORTISONE ACETATE
     Route: 061
  59. CORTISONE ACETATE [Suspect]
     Active Substance: CORTISONE ACETATE
     Route: 061
  60. CORTISONE ACETATE [Suspect]
     Active Substance: CORTISONE ACETATE
     Route: 065
  61. DESOXIMETASONE [Suspect]
     Active Substance: DESOXIMETASONE
     Indication: Product used for unknown indication
     Route: 064
  62. DESOXIMETASONE [Suspect]
     Active Substance: DESOXIMETASONE
     Indication: Rheumatoid arthritis
     Route: 064
  63. DESOXIMETASONE [Suspect]
     Active Substance: DESOXIMETASONE
     Route: 064
  64. DESOXIMETASONE [Suspect]
     Active Substance: DESOXIMETASONE
     Route: 064
  65. DESOXIMETASONE [Suspect]
     Active Substance: DESOXIMETASONE
     Route: 064
  66. DESOXIMETASONE [Suspect]
     Active Substance: DESOXIMETASONE
     Route: 048
  67. DESOXIMETASONE [Suspect]
     Active Substance: DESOXIMETASONE
     Route: 048
  68. DESOXIMETASONE [Suspect]
     Active Substance: DESOXIMETASONE
     Route: 061
  69. DESOXIMETASONE [Suspect]
     Active Substance: DESOXIMETASONE
     Route: 067
  70. DESOXIMETASONE [Suspect]
     Active Substance: DESOXIMETASONE
     Route: 003
  71. ENBREL [Suspect]
     Active Substance: ETANERCEPT
     Indication: Rheumatoid arthritis
     Route: 064
  72. ENBREL [Suspect]
     Active Substance: ETANERCEPT
     Route: 058
  73. ERELZI [Suspect]
     Active Substance: ETANERCEPT-SZZS
     Indication: Rheumatoid arthritis
     Route: 064
  74. FOLIC ACID [Suspect]
     Active Substance: FOLIC ACID
     Indication: Rheumatoid arthritis
     Route: 064
  75. FOLIC ACID [Suspect]
     Active Substance: FOLIC ACID
     Indication: Product used for unknown indication
     Route: 064
  76. FOLIC ACID [Suspect]
     Active Substance: FOLIC ACID
     Route: 064
  77. FOLIC ACID [Suspect]
     Active Substance: FOLIC ACID
     Route: 064
  78. FOLIC ACID [Suspect]
     Active Substance: FOLIC ACID
     Route: 064
  79. FOLIC ACID [Suspect]
     Active Substance: FOLIC ACID
     Route: 064
  80. FOLIC ACID [Suspect]
     Active Substance: FOLIC ACID
     Route: 064
  81. FOLIC ACID [Suspect]
     Active Substance: FOLIC ACID
     Route: 065
  82. FOLIC ACID [Suspect]
     Active Substance: FOLIC ACID
     Route: 065
  83. FOLIC ACID [Suspect]
     Active Substance: FOLIC ACID
     Route: 065
  84. FOLIC ACID [Suspect]
     Active Substance: FOLIC ACID
     Route: 065
  85. FOLIC ACID [Suspect]
     Active Substance: FOLIC ACID
     Route: 065
  86. FOLIC ACID [Suspect]
     Active Substance: FOLIC ACID
     Route: 065
  87. FOSAMAX [Suspect]
     Active Substance: ALENDRONATE SODIUM
     Indication: Product used for unknown indication
     Route: 064
  88. FOSAMAX [Suspect]
     Active Substance: ALENDRONATE SODIUM
     Indication: Rheumatoid arthritis
     Route: 064
  89. FOSAMAX [Suspect]
     Active Substance: ALENDRONATE SODIUM
     Route: 064
  90. FOSAMAX [Suspect]
     Active Substance: ALENDRONATE SODIUM
     Route: 048
  91. FOSAMAX [Suspect]
     Active Substance: ALENDRONATE SODIUM
     Route: 048
  92. GOLIMUMAB [Suspect]
     Active Substance: GOLIMUMAB
     Indication: Product used for unknown indication
     Route: 064
  93. HUMIRA [Suspect]
     Active Substance: ADALIMUMAB
     Indication: Rheumatoid arthritis
     Route: 064
  94. HUMIRA [Suspect]
     Active Substance: ADALIMUMAB
     Indication: Product used for unknown indication
     Route: 064
  95. HUMIRA [Suspect]
     Active Substance: ADALIMUMAB
     Route: 058
  96. HUMIRA [Suspect]
     Active Substance: ADALIMUMAB
     Route: 058
  97. HYDROXYCHLOROQUINE SULFATE [Suspect]
     Active Substance: HYDROXYCHLOROQUINE SULFATE
     Indication: Product used for unknown indication
     Route: 064
  98. HYDROXYCHLOROQUINE SULFATE [Suspect]
     Active Substance: HYDROXYCHLOROQUINE SULFATE
     Indication: Rheumatoid arthritis
     Route: 064
  99. HYDROXYCHLOROQUINE SULFATE [Suspect]
     Active Substance: HYDROXYCHLOROQUINE SULFATE
     Route: 064
  100. HYDROXYCHLOROQUINE SULFATE [Suspect]
     Active Substance: HYDROXYCHLOROQUINE SULFATE
     Route: 064
  101. HYDROXYCHLOROQUINE SULFATE [Suspect]
     Active Substance: HYDROXYCHLOROQUINE SULFATE
     Route: 064
  102. HYDROXYCHLOROQUINE SULFATE [Suspect]
     Active Substance: HYDROXYCHLOROQUINE SULFATE
     Dosage: 400 MILLIGRAM DAILY;
     Route: 065
  103. HYDROXYCHLOROQUINE SULFATE [Suspect]
     Active Substance: HYDROXYCHLOROQUINE SULFATE
     Dosage: 400 MILLIGRAM DAILY;
     Route: 065
  104. HYDROXYCHLOROQUINE SULFATE [Suspect]
     Active Substance: HYDROXYCHLOROQUINE SULFATE
     Dosage: 400 MILLIGRAM DAILY;
     Route: 065
  105. HYDROXYCHLOROQUINE SULFATE [Suspect]
     Active Substance: HYDROXYCHLOROQUINE SULFATE
     Dosage: 400 MILLIGRAM DAILY;
     Route: 065
  106. HYDROXYCHLOROQUINE SULFATE [Suspect]
     Active Substance: HYDROXYCHLOROQUINE SULFATE
     Dosage: 400 MILLIGRAM DAILY;
     Route: 065
  107. HYDROXYCHLOROQUINE SULFATE [Suspect]
     Active Substance: HYDROXYCHLOROQUINE SULFATE
     Route: 048
  108. KEVZARA [Suspect]
     Active Substance: SARILUMAB
     Indication: Rheumatoid arthritis
     Route: 064
  109. ORENCIA [Suspect]
     Active Substance: ABATACEPT
     Indication: Rheumatoid arthritis
     Route: 064
  110. ORENCIA [Suspect]
     Active Substance: ABATACEPT
     Indication: Product used for unknown indication
     Route: 064
  111. ORENCIA [Suspect]
     Active Substance: ABATACEPT
     Route: 064
  112. ORENCIA [Suspect]
     Active Substance: ABATACEPT
     Route: 042
  113. ORENCIA [Suspect]
     Active Substance: ABATACEPT
     Route: 058
  114. OTEZLA [Suspect]
     Active Substance: APREMILAST
     Indication: Product used for unknown indication
     Route: 064
  115. OTEZLA [Suspect]
     Active Substance: APREMILAST
     Route: 048
  116. OTEZLA [Suspect]
     Active Substance: APREMILAST
     Route: 048
  117. OTEZLA [Suspect]
     Active Substance: APREMILAST
     Dosage: 6 MILLIGRAM DAILY;
     Route: 048
  118. OTEZLA [Suspect]
     Active Substance: APREMILAST
     Dosage: 6 MILLIGRAM DAILY;
     Route: 048
  119. PHTHALYLSULFATHIAZOLE [Suspect]
     Active Substance: PHTHALYLSULFATHIAZOLE
     Indication: Product used for unknown indication
     Route: 064
  120. PHTHALYLSULFATHIAZOLE [Suspect]
     Active Substance: PHTHALYLSULFATHIAZOLE
     Indication: Rheumatoid arthritis
     Route: 064
  121. PSEUDOEPHEDRINE HYDROCHLORIDE [Suspect]
     Active Substance: PSEUDOEPHEDRINE HYDROCHLORIDE
     Indication: Rheumatoid arthritis
     Route: 064
  122. PSEUDOEPHEDRINE HYDROCHLORIDE [Suspect]
     Active Substance: PSEUDOEPHEDRINE HYDROCHLORIDE
     Route: 048
  123. REMICADE [Suspect]
     Active Substance: INFLIXIMAB
     Indication: Rheumatoid arthritis
     Route: 064
  124. REMICADE [Suspect]
     Active Substance: INFLIXIMAB
     Indication: Colitis ulcerative
     Route: 064
  125. REMICADE [Suspect]
     Active Substance: INFLIXIMAB
     Indication: Product used for unknown indication
     Route: 064
  126. REMICADE [Suspect]
     Active Substance: INFLIXIMAB
     Route: 042
  127. REMICADE [Suspect]
     Active Substance: INFLIXIMAB
     Route: 042
  128. RITUXIMAB [Suspect]
     Active Substance: RITUXIMAB
     Indication: Product used for unknown indication
     Route: 064
  129. RITUXIMAB [Suspect]
     Active Substance: RITUXIMAB
     Indication: Rheumatoid arthritis
     Route: 064
  130. RITUXIMAB [Suspect]
     Active Substance: RITUXIMAB
     Route: 064
  131. RITUXIMAB [Suspect]
     Active Substance: RITUXIMAB
     Route: 042
  132. RITUXIMAB [Suspect]
     Active Substance: RITUXIMAB
     Route: 058
  133. RITUXIMAB [Suspect]
     Active Substance: RITUXIMAB
     Route: 041
  134. SIMPONI [Suspect]
     Active Substance: GOLIMUMAB
     Indication: Rheumatoid arthritis
     Route: 064
  135. SIMPONI [Suspect]
     Active Substance: GOLIMUMAB
     Indication: Product used for unknown indication
     Route: 064
  136. SIMPONI [Suspect]
     Active Substance: GOLIMUMAB
     Route: 058
  137. SIMPONI [Suspect]
     Active Substance: GOLIMUMAB
     Route: 058
  138. SIMPONI [Suspect]
     Active Substance: GOLIMUMAB
     Route: 058
  139. SIMPONI [Suspect]
     Active Substance: GOLIMUMAB
     Route: 058
  140. SOLU-MEDROL [Suspect]
     Active Substance: METHYLPREDNISOLONE SODIUM SUCCINATE
     Indication: Product used for unknown indication
     Route: 064
  141. STELARA [Suspect]
     Active Substance: USTEKINUMAB
     Indication: Rheumatoid arthritis
     Route: 064
  142. STELARA [Suspect]
     Active Substance: USTEKINUMAB
     Indication: Product used for unknown indication
     Route: 058
  143. STELARA [Suspect]
     Active Substance: USTEKINUMAB
     Route: 058
  144. STELARA [Suspect]
     Active Substance: USTEKINUMAB
     Route: 058
  145. SULFASALAZINE [Suspect]
     Active Substance: SULFASALAZINE
     Indication: Rheumatoid arthritis
     Route: 064
  146. SULFASALAZINE [Suspect]
     Active Substance: SULFASALAZINE
     Indication: Product used for unknown indication
     Route: 064
  147. SULFASALAZINE [Suspect]
     Active Substance: SULFASALAZINE
     Dosage: 1000 MILLIGRAM DAILY;
     Route: 048
  148. SULFASALAZINE [Suspect]
     Active Substance: SULFASALAZINE
     Dosage: 1000 MILLIGRAM DAILY;
     Route: 048
  149. SULFASALAZINE [Suspect]
     Active Substance: SULFASALAZINE
     Dosage: 1000 MILLIGRAM DAILY;
     Route: 048
  150. SULFASALAZINE [Suspect]
     Active Substance: SULFASALAZINE
     Dosage: 500 MILLIGRAM DAILY;
     Route: 048
  151. SULFASALAZINE [Suspect]
     Active Substance: SULFASALAZINE
     Dosage: 500 MILLIGRAM DAILY;
     Route: 048
  152. SULFASALAZINE [Suspect]
     Active Substance: SULFASALAZINE
     Dosage: 500 MILLIGRAM DAILY;
     Route: 048
  153. SULFASALAZINE [Suspect]
     Active Substance: SULFASALAZINE
     Route: 058
  154. TOCILIZUMAB [Suspect]
     Active Substance: TOCILIZUMAB
     Indication: Rheumatoid arthritis
     Route: 064
  155. TOCILIZUMAB [Suspect]
     Active Substance: TOCILIZUMAB
     Indication: Product used for unknown indication
     Route: 058
  156. PREDNISONE [Suspect]
     Active Substance: PREDNISONE
     Indication: Product used for unknown indication
     Route: 064
  157. PREDNISONE [Suspect]
     Active Substance: PREDNISONE
     Indication: Rheumatoid arthritis
     Route: 048
  158. PREDNISONE [Suspect]
     Active Substance: PREDNISONE
     Route: 048
  159. XELJANZ [Suspect]
     Active Substance: TOFACITINIB CITRATE
     Indication: Rheumatoid arthritis
     Route: 064
  160. XELJANZ [Suspect]
     Active Substance: TOFACITINIB CITRATE
     Indication: Product used for unknown indication
     Route: 065
  161. XELJANZ [Suspect]
     Active Substance: TOFACITINIB CITRATE
     Route: 048
  162. CALCIUM GLUBIONATE [Suspect]
     Active Substance: CALCIUM GLUBIONATE
     Indication: Product used for unknown indication
     Route: 065
  163. CERTOLIZUMAB PEGOL [Suspect]
     Active Substance: CERTOLIZUMAB PEGOL
     Indication: Product used for unknown indication
     Route: 065
  164. COSENTYX [Suspect]
     Active Substance: SECUKINUMAB
     Indication: Product used for unknown indication
     Route: 065
  165. HYDROCORTISONE ACETATE [Suspect]
     Active Substance: HYDROCORTISONE ACETATE
     Indication: Product used for unknown indication
     Route: 048
  166. HYDROXYCHLOROQUINE [Suspect]
     Active Substance: HYDROXYCHLOROQUINE
     Indication: Product used for unknown indication
     Route: 065
  167. HYDROXYCHLOROQUINE [Suspect]
     Active Substance: HYDROXYCHLOROQUINE
     Indication: Rheumatoid arthritis
     Dosage: 400 MILLIGRAM DAILY;
     Route: 065
  168. HYDROXYCHLOROQUINE [Suspect]
     Active Substance: HYDROXYCHLOROQUINE
     Dosage: 400 MILLIGRAM DAILY;
     Route: 065
  169. HYDROXYCHLOROQUINE [Suspect]
     Active Substance: HYDROXYCHLOROQUINE
     Dosage: 400 MILLIGRAM DAILY;
     Route: 065
  170. HYDROXYCHLOROQUINE [Suspect]
     Active Substance: HYDROXYCHLOROQUINE
     Dosage: 400 MILLIGRAM DAILY;
     Route: 065
  171. HYDROXYCHLOROQUINE [Suspect]
     Active Substance: HYDROXYCHLOROQUINE
     Indication: Product used for unknown indication
     Route: 065
  172. METHOTREXATE [Suspect]
     Active Substance: METHOTREXATE
     Indication: Product used for unknown indication
     Dosage: 25 MILLIGRAM DAILY;
     Route: 048
  173. METHOTREXATE [Suspect]
     Active Substance: METHOTREXATE
     Indication: Rheumatoid arthritis
  174. CETIRIZINE HYDROCHLORIDE\PSEUDOEPHEDRINE HYDROCHLORIDE [Suspect]
     Active Substance: CETIRIZINE HYDROCHLORIDE\PSEUDOEPHEDRINE HYDROCHLORIDE
     Indication: Rheumatoid arthritis
     Route: 067
  175. VITAMIN C [Suspect]
     Active Substance: ASCORBIC ACID
     Indication: Product used for unknown indication
     Route: 065
  176. CAFFEINE CITRATE [Concomitant]
     Active Substance: CAFFEINE CITRATE
     Indication: Product used for unknown indication
     Route: 064
  177. CODEINE [Concomitant]
     Active Substance: CODEINE
     Indication: Product used for unknown indication
     Route: 064
  178. IBUPROFEN [Concomitant]
     Active Substance: IBUPROFEN
     Indication: Product used for unknown indication
     Route: 064
  179. LISINOPRIL [Concomitant]
     Active Substance: LISINOPRIL
     Indication: Product used for unknown indication
     Route: 064
  180. SULFASALAZINE [Concomitant]
     Active Substance: SULFASALAZINE
     Indication: Product used for unknown indication
     Route: 064
  181. SULFASALAZINE [Concomitant]
     Active Substance: SULFASALAZINE
     Indication: Rheumatoid arthritis
  182. VITAMIN D3 [Concomitant]
     Active Substance: CHOLECALCIFEROL
     Indication: Product used for unknown indication
     Route: 065
  183. DICLOFENAC POTASSIUM [Concomitant]
     Active Substance: DICLOFENAC POTASSIUM
     Indication: Product used for unknown indication
     Route: 065
  184. TOFACITINIB CITRATE [Concomitant]
     Active Substance: TOFACITINIB CITRATE
     Indication: Product used for unknown indication
     Route: 048
  185. TOFACITINIB CITRATE [Concomitant]
     Active Substance: TOFACITINIB CITRATE
     Route: 048
  186. TOFACITINIB CITRATE [Concomitant]
     Active Substance: TOFACITINIB CITRATE
     Route: 048

REACTIONS (62)
  - Abdominal discomfort [Fatal]
  - Death neonatal [Fatal]
  - Alopecia [Fatal]
  - Arthralgia [Fatal]
  - Arthropathy [Fatal]
  - Blister [Fatal]
  - Condition aggravated [Fatal]
  - Decreased appetite [Fatal]
  - Diarrhoea [Fatal]
  - Discomfort [Fatal]
  - Duodenal ulcer perforation [Fatal]
  - Fatigue [Fatal]
  - Fibromyalgia [Fatal]
  - General physical health deterioration [Fatal]
  - Glossodynia [Fatal]
  - Malaise [Fatal]
  - Hand deformity [Fatal]
  - Headache [Fatal]
  - Mobility decreased [Fatal]
  - Helicobacter infection [Fatal]
  - Hip arthroplasty [Fatal]
  - Hypercholesterolaemia [Fatal]
  - Hypersensitivity [Fatal]
  - Hypertension [Fatal]
  - Hypoaesthesia [Fatal]
  - Infusion related reaction [Fatal]
  - Injury [Fatal]
  - Joint swelling [Fatal]
  - Knee arthroplasty [Fatal]
  - Liver injury [Fatal]
  - Musculoskeletal stiffness [Fatal]
  - Pain [Fatal]
  - Pemphigus [Fatal]
  - Pericarditis [Fatal]
  - Psoriatic arthropathy [Fatal]
  - Rash [Fatal]
  - Rheumatic fever [Fatal]
  - Rheumatoid arthritis [Fatal]
  - Swelling [Fatal]
  - Synovitis [Fatal]
  - Systemic lupus erythematosus [Fatal]
  - Systemic lupus erythematosus [Fatal]
  - Type 2 diabetes mellitus [Fatal]
  - Wound [Fatal]
  - Anti-cyclic citrullinated peptide antibody [Fatal]
  - Anti-cyclic citrullinated peptide antibody positive [Fatal]
  - Blood cholesterol increased [Fatal]
  - Hepatic enzyme increased [Fatal]
  - Rheumatoid factor positive [Fatal]
  - Maternal exposure during pregnancy [Fatal]
  - Exposure during pregnancy [Fatal]
  - Contraindicated product administered [Fatal]
  - Product use in unapproved indication [Fatal]
  - Product use issue [Fatal]
  - Therapeutic product effect decreased [Fatal]
  - Treatment failure [Fatal]
  - Off label use [Fatal]
  - Intentional product use issue [Fatal]
  - Drug ineffective [Fatal]
  - Drug intolerance [Fatal]
  - Adverse drug reaction [Fatal]
  - Adverse event [Fatal]
